FAERS Safety Report 4532237-5 (Version None)
Quarter: 2004Q4

REPORT INFORMATION
  Report Type: 
  Country: None (occurrence: None)
  Receive Date: 20041206
  Receipt Date: 20040921
  Transmission Date: 20050328
  Serious: No
  Sender: FDA-Public Use
  Company Number: USA040978573

PATIENT
  Age: 46 Year
  Sex: Male

DRUGS (4)
  1. CYMBALTA [Suspect]
     Indication: FIBROMYALGIA
     Dosage: 60 MG DAY
     Dates: start: 20040801
  2. FLEXERIL [Concomitant]
  3. GALENIC /MISOPROSTOL/DICLOFENAC  SODIUM [Concomitant]
  4. COREG [Concomitant]

REACTIONS (6)
  - ABDOMINAL PAIN UPPER [None]
  - DIARRHOEA [None]
  - EJACULATION DISORDER [None]
  - LIBIDO DECREASED [None]
  - MALE ORGASMIC DISORDER [None]
  - VISION BLURRED [None]
